FAERS Safety Report 19828883 (Version 1)
Quarter: 2021Q3

REPORT INFORMATION
  Report Type: Spontaneous
  Country: US (occurrence: US)
  Receive Date: 20210914
  Receipt Date: 20210914
  Transmission Date: 20211014
  Serious: No
  Sender: FDA-Public Use
  Company Number: US-ABBVIE-21K-163-3846158-00

PATIENT
  Age: 55 Year
  Sex: Female
  Weight: 76.27 kg

DRUGS (2)
  1. ROSUVASTATIN (NON?ABBVIE) [Concomitant]
     Indication: BLOOD CHOLESTEROL INCREASED
  2. RINVOQ [Suspect]
     Active Substance: UPADACITINIB
     Indication: PRODUCT USED FOR UNKNOWN INDICATION
     Route: 048
     Dates: start: 202002, end: 20210401

REACTIONS (3)
  - Hyperactive pharyngeal reflex [Recovered/Resolved]
  - Pain [Recovering/Resolving]
  - Rheumatoid arthritis [Unknown]

NARRATIVE: CASE EVENT DATE: 202103
